FAERS Safety Report 7867469-1 (Version None)
Quarter: 2011Q4

REPORT INFORMATION
  Report Type: 
  Country: None (occurrence: None)
  Receive Date: 20111028
  Receipt Date: 20111018
  Transmission Date: 20120403
  Serious: Yes (Death, Other)
  Sender: FDA-Public Use
  Company Number: US-BAYER-201041940NA

PATIENT
  Age: 76 Year
  Sex: Female
  Weight: 89.796 kg

DRUGS (20)
  1. QUINAPRIL [Concomitant]
     Dosage: 20 MG, QD
     Route: 048
  2. PLAQUENIL [Concomitant]
     Dosage: 200 MG, QD
     Route: 048
  3. DOBUTREX [Concomitant]
     Dosage: 2.5MCG, 14
     Route: 042
     Dates: start: 20061010
  4. ZOCOR [Concomitant]
     Dosage: 40 MG, QD
     Route: 048
  5. ACETYLSALICYLIC ACID SRT [Concomitant]
     Dosage: 81 MG, QD
     Route: 048
  6. NITROGLYCERIN [Concomitant]
     Dosage: UNK
     Route: 042
     Dates: start: 20061010
  7. VANCOMYCIN HCL [Concomitant]
     Dosage: 1 GRAM
     Route: 042
     Dates: start: 20061010
  8. MANNITOL [Concomitant]
     Dosage: 12.5GM
     Route: 042
     Dates: start: 20061010
  9. IOPAMIDOL [Concomitant]
     Dosage: 135 CC
     Dates: start: 20061005
  10. FRESH FROZEN PLASMA [Concomitant]
  11. TRASYLOL [Suspect]
     Indication: CORONARY ARTERY BYPASS
     Dosage: TEST DOSE 1ML
     Route: 042
     Dates: start: 20061010, end: 20061010
  12. ATENOLOL [Concomitant]
     Dosage: 25 MG, QD
     Route: 048
  13. RED BLOOD CELLS [Concomitant]
     Dosage: UNK
     Dates: start: 20061010
  14. HEPARIN [Concomitant]
     Dosage: 37,000 UNITS
     Dates: start: 20061010
  15. NOVOLIN [INSULIN] [Concomitant]
     Dosage: UNK
     Route: 042
     Dates: start: 20061010
  16. TRASYLOL [Suspect]
     Dosage: 300 ML APROTININ PRIME
     Route: 042
  17. PREDNISONE [Concomitant]
     Dosage: 10 MG, QD
     Route: 048
  18. DYAZIDE [Concomitant]
     Dosage: 37.5/25CP DAILY
     Route: 048
  19. PRILOSEC [Concomitant]
     Dosage: 20 MG, UNK
     Route: 048
  20. FENTANYL-100 [Concomitant]
     Dosage: 20CC
     Route: 042
     Dates: start: 20061010

REACTIONS (14)
  - RENAL FAILURE [None]
  - RENAL IMPAIRMENT [None]
  - EMOTIONAL DISORDER [None]
  - MULTI-ORGAN FAILURE [None]
  - INJURY [None]
  - STRESS [None]
  - ANXIETY [None]
  - PAIN [None]
  - RENAL DISORDER [None]
  - MENTAL DISORDER [None]
  - DEATH [None]
  - FEAR [None]
  - RENAL INJURY [None]
  - UNEVALUABLE EVENT [None]
